FAERS Safety Report 6881364-6 (Version None)
Quarter: 2010Q3

REPORT INFORMATION
  Report Type: 
  Country: None (occurrence: None)
  Receive Date: 20100728
  Receipt Date: 20100728
  Transmission Date: 20110219
  Serious: No
  Sender: FDA-Public Use
  Company Number: None

PATIENT
  Sex: Male
  Weight: 27.3 kg

DRUGS (1)
  1. PEG-INTRON [Suspect]
     Dosage: 108 MCG

REACTIONS (1)
  - HYPERNATRAEMIA [None]
